FAERS Safety Report 7450122-6 (Version None)
Quarter: 2011Q2

REPORT INFORMATION
  Report Type: 
  Country: None (occurrence: None)
  Receive Date: 20110502
  Receipt Date: 20110419
  Transmission Date: 20111010
  Serious: Yes (Death, Congenital Anomaly)
  Sender: FDA-Public Use
  Company Number: US-ELI_LILLY_AND_COMPANY-US201104005726

PATIENT

DRUGS (2)
  1. THYROID TAB [Concomitant]
     Route: 064
  2. CYMBALTA [Suspect]
     Indication: DEPRESSION
     Dosage: 30 MG, QD
     Route: 050

REACTIONS (3)
  - TURNER'S SYNDROME [None]
  - DRUG EXPOSURE BEFORE PREGNANCY [None]
  - INTRA-UTERINE DEATH [None]
